FAERS Safety Report 16150956 (Version 7)
Quarter: 2019Q3

REPORT INFORMATION
  Report Type: Spontaneous
  Country: FI (occurrence: FI)
  Receive Date: 20190403
  Receipt Date: 20190915
  Transmission Date: 20191004
  Serious: Yes (Hospitalization, Other)
  Sender: FDA-Public Use
  Company Number: PHHY2019FI072882

PATIENT
  Age: 71 Year
  Sex: Female

DRUGS (8)
  1. HISTEC [Concomitant]
     Active Substance: CETIRIZINE HYDROCHLORIDE
     Indication: PRODUCT USED FOR UNKNOWN INDICATION
     Dosage: 10 MG, PRN
     Route: 048
  2. VOLTAREN [Suspect]
     Active Substance: DICLOFENAC SODIUM
     Indication: MYALGIA
     Dosage: 2 DF, BID (ONE PROLONGED RELEASE TABLET IN THE MORNING AND ONE IN THE EVENING)
     Route: 048
     Dates: start: 20190316, end: 20190318
  3. VOLTAREN [Suspect]
     Active Substance: DICLOFENAC SODIUM
     Indication: FLANK PAIN
  4. CALCICHEW D3 [Concomitant]
     Active Substance: CALCIUM\CHOLECALCIFEROL
     Indication: PRODUCT USED FOR UNKNOWN INDICATION
     Dosage: 1 DF, QD
     Route: 065
  5. SOMAC [Suspect]
     Active Substance: PANTOPRAZOLE SODIUM
     Indication: PRODUCT USED FOR UNKNOWN INDICATION
     Dosage: UNK UNK, BID (IN THE MORNINGS AND IN THE EVENINGS)
     Route: 065
  6. ADVANTA CALCIUM + VITAMIN D3 [Concomitant]
     Indication: BONE DISORDER
     Dosage: UNK
     Route: 065
  7. OCULAC [Concomitant]
     Indication: PRODUCT USED FOR UNKNOWN INDICATION
     Dosage: 1 DRP, PRN ONE DROP TO BOTH EYES IF NEEDED
     Route: 047
  8. NORFLEX [Concomitant]
     Active Substance: ORPHENADRINE CITRATE
     Indication: PRODUCT USED FOR UNKNOWN INDICATION
     Dosage: 1 DF, 1-2 TIMES, QD
     Route: 065

REACTIONS (26)
  - Blood chloride increased [Recovered/Resolved]
  - Asthenia [Recovered/Resolved]
  - Dieulafoy^s vascular malformation [Recovered/Resolved]
  - Arterial rupture [Recovered/Resolved]
  - Red cell distribution width increased [Recovered/Resolved]
  - Gastric ulcer [Recovered/Resolved]
  - Vomiting [Recovered/Resolved]
  - Frequent bowel movements [Unknown]
  - Coccydynia [Recovered/Resolved]
  - Hypotension [Recovered/Resolved]
  - Electrocardiogram abnormal [Recovered/Resolved]
  - Blood sodium decreased [Unknown]
  - Blood albumin decreased [Unknown]
  - Back injury [Recovered/Resolved]
  - Dizziness [Unknown]
  - Loss of consciousness [Recovered/Resolved]
  - Syncope [Unknown]
  - Haemorrhage [Recovered/Resolved]
  - Red cell distribution width increased [Recovered/Resolved]
  - Diarrhoea [Unknown]
  - Haematocrit decreased [Unknown]
  - Red blood cell count decreased [Unknown]
  - Fall [Unknown]
  - Haemoglobin decreased [Recovered/Resolved]
  - Melaena [Recovered/Resolved]
  - Headache [Recovered/Resolved]

NARRATIVE: CASE EVENT DATE: 201903
